FAERS Safety Report 8500275-3 (Version None)
Quarter: 2012Q3

REPORT INFORMATION
  Report Type: 
  Country: None (occurrence: None)
  Receive Date: 20120710
  Receipt Date: 20120704
  Transmission Date: 20120928
  Serious: Yes (Hospitalization)
  Sender: FDA-Public Use
  Company Number: FR-GILEAD-2012-0052972

PATIENT
  Sex: Female

DRUGS (8)
  1. INDAPAMIDE [Suspect]
     Indication: HYPERTENSION
     Dosage: 2.5 MG, QD
     Route: 048
     Dates: end: 20120218
  2. ATRIPLA [Suspect]
     Indication: HIV INFECTION
     Dosage: 1 DF, QD
     Route: 048
     Dates: end: 20120218
  3. IMOVANE [Concomitant]
     Dosage: 7.5 MG, QD
     Route: 048
  4. ACTONEL [Suspect]
     Dosage: 30 MG, Q1WK
     Route: 048
     Dates: end: 20120220
  5. TARKA [Suspect]
     Indication: HYPERTENSION
     Dosage: 1 DF, QD
     Route: 048
     Dates: end: 20120218
  6. MEDIATENSYL                        /00631801/ [Suspect]
     Indication: HYPERTENSION
     Dosage: 2 DF, QD
     Route: 048
     Dates: end: 20120220
  7. PLAVIX [Suspect]
     Dosage: 75 MG, QD
     Route: 048
     Dates: end: 20120220
  8. EZETIMIBE [Concomitant]
     Dosage: 10 MG, QD
     Route: 048

REACTIONS (1)
  - RENAL TUBULAR DISORDER [None]
